FAERS Safety Report 15044673 (Version 2)
Quarter: 2018Q3

REPORT INFORMATION
  Report Type: Report from Study
  Country: CN (occurrence: CN)
  Receive Date: 20180621
  Receipt Date: 20180718
  Transmission Date: 20181010
  Serious: Yes (Other)
  Sender: FDA-Public Use
  Company Number: CN-GUERBET-CN-20180020

PATIENT

DRUGS (6)
  1. DEXAMETHASONE. [Concomitant]
     Active Substance: DEXAMETHASONE
     Indication: HORMONE THERAPY
     Route: 065
  2. PINGYANGMYCIN [Concomitant]
     Active Substance: BLEOMYCIN A5
     Indication: THERAPEUTIC EMBOLISATION
     Dosage: 8?12 MG/M2 BODY SURFACE AREA.
     Route: 065
  3. LIPIODOL ULTRA?FLUIDE [Suspect]
     Active Substance: ETHIODIZED OIL
     Indication: THERAPEUTIC EMBOLISATION
     Route: 065
  4. SIROLIMUS. [Concomitant]
     Active Substance: SIROLIMUS
     Indication: PRODUCT USED FOR UNKNOWN INDICATION
     Route: 048
  5. DEXAMETHASONE. [Concomitant]
     Active Substance: DEXAMETHASONE
     Indication: THERAPEUTIC EMBOLISATION
     Dosage: 1?2 MG/KG
     Route: 042
  6. IOHEXOL [Concomitant]
     Active Substance: IOHEXOL
     Indication: THERAPEUTIC EMBOLISATION
     Dosage: 3 ? 7 ML
     Route: 065

REACTIONS (2)
  - Tumour ulceration [Recovering/Resolving]
  - Product use in unapproved indication [Recovering/Resolving]
